FAERS Safety Report 8583708-6 (Version None)
Quarter: 2012Q3

REPORT INFORMATION
  Report Type: 
  Country: None (occurrence: None)
  Receive Date: 20120809
  Receipt Date: 20120711
  Transmission Date: 20120928
  Serious: No
  Sender: FDA-Public Use
  Company Number: US-009507513-2012SP029433

PATIENT

DRUGS (1)
  1. PROVENTIL [Suspect]
     Indication: EMPHYSEMA
     Dosage: 6 DF, PRN

REACTIONS (3)
  - DYSPNOEA [None]
  - DRUG DOSE OMISSION [None]
  - OFF LABEL USE [None]
